FAERS Safety Report 17662691 (Version 3)
Quarter: 2020Q4

REPORT INFORMATION
  Report Type: Spontaneous
  Country: US (occurrence: US)
  Receive Date: 20200413
  Receipt Date: 20201120
  Transmission Date: 20210113
  Serious: Yes (Hospitalization, Disabling, Other)
  Sender: FDA-Public Use
  Company Number: US-PURDUE-USA-2020-0151641

PATIENT
  Age: 60 Year
  Sex: Female
  Weight: 66.67 kg

DRUGS (13)
  1. CORTISONE [Suspect]
     Active Substance: CORTISONE
     Indication: ARTHRITIS
  2. METHOTREXATE. [Suspect]
     Active Substance: METHOTREXATE
     Indication: ARTHRITIS
     Dosage: UNK
     Route: 065
  3. OXYCONTIN [Suspect]
     Active Substance: OXYCODONE HYDROCHLORIDE
     Indication: PAIN
     Dosage: (20MG) 1 TABLET, TID
     Route: 048
     Dates: end: 20190527
  4. OXYCONTIN [Suspect]
     Active Substance: OXYCODONE HYDROCHLORIDE
     Indication: RHEUMATOID ARTHRITIS
     Dosage: 40 MG, BID
     Route: 048
     Dates: start: 1996, end: 20190527
  5. OXYCONTIN [Suspect]
     Active Substance: OXYCODONE HYDROCHLORIDE
     Dosage: 80 MG, UNK
     Route: 048
     Dates: start: 1996, end: 20190527
  6. PERCOCET                           /00446701/ [Suspect]
     Active Substance: ACETAMINOPHEN\OXYCODONE HYDROCHLORIDE\OXYCODONE TEREPHTHALATE
     Indication: ARTHRITIS
     Dosage: (5MG/325MG) 1 TABLET, PRN (EVERY 4 TO 6 HOURS)
     Route: 048
     Dates: end: 20190527
  7. GABAPENTIN. [Suspect]
     Active Substance: GABAPENTIN
     Indication: PAIN
     Dosage: 1 TABLET, TID
     Route: 048
  8. OXYCONTIN [Suspect]
     Active Substance: OXYCODONE HYDROCHLORIDE
     Indication: ARTHRITIS
     Dosage: (20MG) 1 TABLET, Q12H
     Route: 048
     Dates: start: 1996
  9. METHOTREXATE. [Suspect]
     Active Substance: METHOTREXATE
     Indication: RHEUMATOID ARTHRITIS
  10. PERCOCET                           /00446701/ [Suspect]
     Active Substance: ACETAMINOPHEN\OXYCODONE HYDROCHLORIDE\OXYCODONE TEREPHTHALATE
     Indication: PAIN
  11. HUMIRA [Suspect]
     Active Substance: ADALIMUMAB
     Indication: PRODUCT USED FOR UNKNOWN INDICATION
     Dosage: UNK
     Route: 065
     Dates: end: 2005
  12. PERCOCET                           /00446701/ [Suspect]
     Active Substance: ACETAMINOPHEN\OXYCODONE HYDROCHLORIDE\OXYCODONE TEREPHTHALATE
     Indication: RHEUMATOID ARTHRITIS
  13. CORTISONE [Suspect]
     Active Substance: CORTISONE
     Indication: PAIN
     Dosage: UNK
     Route: 065

REACTIONS (21)
  - Tremor [Not Recovered/Not Resolved]
  - Generalised tonic-clonic seizure [Unknown]
  - Hospitalisation [Unknown]
  - Deafness [Not Recovered/Not Resolved]
  - Euphoric mood [Unknown]
  - Drug ineffective [Unknown]
  - Hypertension [Unknown]
  - Depression [Unknown]
  - Mental impairment [Not Recovered/Not Resolved]
  - Brain injury [Unknown]
  - Dry mouth [Unknown]
  - Learning disability [Not Recovered/Not Resolved]
  - Weight decreased [Unknown]
  - Impaired work ability [Unknown]
  - Anxiety [Unknown]
  - Amnesia [Unknown]
  - Drug dependence [Recovered/Resolved]
  - Myocardial infarction [Unknown]
  - Seizure [Unknown]
  - Nerve injury [Unknown]
  - Back injury [Unknown]

NARRATIVE: CASE EVENT DATE: 2005
